FAERS Safety Report 19675128 (Version 1)
Quarter: 2021Q3

REPORT INFORMATION
  Report Type: Spontaneous
  Country: US (occurrence: US)
  Receive Date: 20210809
  Receipt Date: 20210809
  Transmission Date: 20211014
  Serious: No
  Sender: FDA-Public Use
  Company Number: US-ROCHE-2641339

PATIENT
  Sex: Female

DRUGS (1)
  1. BONVIVA [Suspect]
     Active Substance: IBANDRONATE SODIUM
     Indication: PRODUCT USED FOR UNKNOWN INDICATION
     Dosage: ONGOING; NO
     Route: 065
     Dates: start: 202005

REACTIONS (4)
  - Sensory disturbance [Unknown]
  - Herpes zoster [Unknown]
  - Pain [Unknown]
  - Pruritus [Unknown]
